FAERS Safety Report 8506529-9 (Version None)
Quarter: 2012Q3

REPORT INFORMATION
  Report Type: 
  Country: None (occurrence: None)
  Receive Date: 20120712
  Receipt Date: 20120426
  Transmission Date: 20120928
  Serious: No
  Sender: FDA-Public Use
  Company Number: US-GLAXOSMITHKLINE-A0975311A

PATIENT
  Age: 49 Year
  Sex: Male

DRUGS (6)
  1. ASCORBIC ACID [Concomitant]
  2. LOVAZA [Concomitant]
  3. VITAMIN B COMPLEX CAP [Concomitant]
  4. MULTI-VITAMIN [Concomitant]
  5. JALYN [Suspect]
     Indication: BENIGN PROSTATIC HYPERPLASIA
     Dosage: 1CAP AT NIGHT
     Route: 048
     Dates: start: 20120101
  6. ASPIRIN [Concomitant]

REACTIONS (1)
  - NASAL CONGESTION [None]
